FAERS Safety Report 6333320-4 (Version None)
Quarter: 2009Q3

REPORT INFORMATION
  Report Type: 
  Country: None (occurrence: None)
  Receive Date: 20090828
  Receipt Date: 20090819
  Transmission Date: 20100115
  Serious: Yes (Hospitalization)
  Sender: FDA-Public Use
  Company Number: CA-ABBOTT-09P-028-0592479-00

PATIENT
  Sex: Male
  Weight: 74.91 kg

DRUGS (2)
  1. LUPRON DEPOT [Suspect]
     Indication: PROSTATE CANCER
     Route: 050
     Dates: start: 20080823
  2. FRAGMIN [Concomitant]
     Indication: KNEE OPERATION

REACTIONS (1)
  - OSTEOARTHRITIS [None]
